FAERS Safety Report 18723953 (Version 1)
Quarter: 2021Q1

REPORT INFORMATION
  Report Type: Spontaneous
  Country: US (occurrence: US)
  Receive Date: 20210110
  Receipt Date: 20210110
  Transmission Date: 20210419
  Serious: Yes (Other)
  Sender: FDA-Public Use
  Company Number: None

PATIENT
  Age: 58 Year
  Sex: Male
  Weight: 113.4 kg

DRUGS (2)
  1. ALBUTEROL HFA |NH(200 PUFIS)8.SGM [Suspect]
     Active Substance: ALBUTEROL
  2. METOPROLOL. [Concomitant]
     Active Substance: METOPROLOL

REACTIONS (1)
  - Device delivery system issue [None]

NARRATIVE: CASE EVENT DATE: 20210109
